FAERS Safety Report 7563235-5 (Version None)
Quarter: 2011Q2

REPORT INFORMATION
  Report Type: 
  Country: None (occurrence: None)
  Receive Date: 20110615
  Receipt Date: 20110609
  Transmission Date: 20111010
  Serious: Yes (Hospitalization, Other)
  Sender: FDA-Public Use
  Company Number: 2010SP012140

PATIENT
  Age: 36 Year
  Sex: Female
  Weight: 121.564 kg

DRUGS (1)
  1. NUVARING [Suspect]
     Indication: MENSTRUATION IRREGULAR
     Dates: start: 20070306, end: 20080114

REACTIONS (11)
  - DEEP VEIN THROMBOSIS [None]
  - TENDONITIS [None]
  - FIBROCYSTIC BREAST DISEASE [None]
  - LEFT VENTRICULAR HYPERTROPHY [None]
  - TRICUSPID VALVE INCOMPETENCE [None]
  - OVARIAN CYST [None]
  - HYPERTENSION [None]
  - UTERINE ENLARGEMENT [None]
  - MITRAL VALVE INCOMPETENCE [None]
  - VENOUS INSUFFICIENCY [None]
  - ANAEMIA [None]
